FAERS Safety Report 5908302-4 (Version None)
Quarter: 2008Q4

REPORT INFORMATION
  Report Type: 
  Country: None (occurrence: None)
  Receive Date: 20081002
  Receipt Date: 20081002
  Transmission Date: 20090506
  Serious: Yes (Hospitalization)
  Sender: FDA-Public Use
  Company Number: None

PATIENT
  Sex: Female

DRUGS (5)
  1. ZOMETA [Suspect]
     Indication: METASTASES TO BONE
     Dates: start: 20010101, end: 20050101
  2. ASPIRIN [Concomitant]
  3. FEMARA [Concomitant]
  4. LANOXIN [Concomitant]
  5. METOPROLOL TARTRATE [Concomitant]

REACTIONS (6)
  - FISTULA [None]
  - JAW FRACTURE [None]
  - METASTASES TO BONE [None]
  - OSTEONECROSIS [None]
  - TOOTH INFECTION [None]
  - TOOTH LOSS [None]
